FAERS Safety Report 10103473 (Version 1)
Quarter: 2014Q2

REPORT INFORMATION
  Report Type: Spontaneous
  Country: US (occurrence: US)
  Receive Date: 20140424
  Receipt Date: 20140424
  Transmission Date: 20141212
  Serious: Yes (Other)
  Sender: FDA-Public Use
  Company Number: US-ALLERGAN-1407889US

PATIENT
  Age: 65 Year
  Sex: Female

DRUGS (3)
  1. BOTOX [Suspect]
     Indication: OESOPHAGEAL ACHALASIA
     Dosage: UNK, SINGLE
  2. BOTOX [Suspect]
     Dosage: UNK, SINGLE
  3. BOTOX [Suspect]
     Dosage: UNK, SINGLE

REACTIONS (2)
  - Barrett^s oesophagus [Recovered/Resolved]
  - Off label use [Unknown]
